FAERS Safety Report 11596425 (Version 3)
Quarter: 2016Q2

REPORT INFORMATION
  Report Type: Spontaneous
  Country: US (occurrence: US)
  Receive Date: 20151006
  Receipt Date: 20160412
  Transmission Date: 20160815
  Serious: Yes (Other)
  Sender: FDA-Public Use
  Company Number: US-MDT-ADR-2015-01904

PATIENT
  Age: 30 Year
  Sex: Male

DRUGS (13)
  1. OXYBUTYNIN [Suspect]
     Active Substance: OXYBUTYNIN
  2. COMPOUNDED MORPHINE [Suspect]
     Active Substance: MORPHINE
     Dosage: 0.4993
     Route: 037
  3. BUPIVACAINE. [Suspect]
     Active Substance: BUPIVACAINE
     Dosage: 14.238/DAY
     Route: 037
     Dates: start: 2012
  4. BUPIVACAINE. [Suspect]
     Active Substance: BUPIVACAINE
     Dosage: 8MG/DAY
     Route: 037
  5. COMPOUNDED BACLOFEN [Suspect]
     Active Substance: BACLOFEN
     Dosage: 400MCG/DAY
     Route: 037
  6. BUPIVACAINE. [Suspect]
     Active Substance: BUPIVACAINE
     Dosage: 13.315
     Route: 037
  7. MORPHINE [Suspect]
     Active Substance: MORPHINE
     Dosage: 0.2MG/DAY
     Route: 037
  8. BUPIVACAINE. [Suspect]
     Active Substance: BUPIVACAINE
     Dosage: 13.315
     Route: 037
  9. COMPOUNDED BUPIVACAINE [Suspect]
     Active Substance: BUPIVACAINE
     Dosage: 14.238/DAY
     Route: 037
  10. MORPHINE [Suspect]
     Active Substance: MORPHINE
     Dosage: 0.5339/DAY
     Route: 037
     Dates: start: 2012
  11. COMPOUNDED BACLOFEN [Suspect]
     Active Substance: BACLOFEN
     Dosage: 665.7MCG/DAY
     Route: 037
  12. LYRICA [Suspect]
     Active Substance: PREGABALIN
  13. BACLOFEN. [Suspect]
     Active Substance: BACLOFEN
     Dosage: 711.9/DAY
     Route: 037
     Dates: start: 2012

REACTIONS (2)
  - Neuralgia [Recovered/Resolved]
  - Abdominal pain [Recovered/Resolved]
